FAERS Safety Report 22083700 (Version 1)
Quarter: 2023Q1

REPORT INFORMATION
  Report Type: Spontaneous
  Country: CA (occurrence: CA)
  Receive Date: 20230310
  Receipt Date: 20230310
  Transmission Date: 20230417
  Serious: Yes (Death, Hospitalization, Other)
  Sender: FDA-Public Use
  Company Number: CA-002147023-NVSC2023CA053934

PATIENT
  Age: 39 Year
  Sex: Female
  Weight: 124 kg

DRUGS (8)
  1. METHOTREXATE [Suspect]
     Active Substance: METHOTREXATE
     Indication: Product used for unknown indication
     Dosage: 15 MG, QW
     Route: 065
  2. METHOTREXATE [Suspect]
     Active Substance: METHOTREXATE
     Dosage: 15 MG, QW
     Route: 065
  3. HUMIRA [Suspect]
     Active Substance: ADALIMUMAB
     Indication: Rheumatoid arthritis
     Dosage: 40 MG, Q2W
     Route: 058
  4. FOLIC ACID [Concomitant]
     Active Substance: FOLIC ACID
     Indication: Product used for unknown indication
     Dosage: 1 MG, QD
     Route: 065
  5. GABAPENTIN [Concomitant]
     Active Substance: GABAPENTIN
     Indication: Product used for unknown indication
     Dosage: 1200 MG, BID
     Route: 065
  6. HYDROXYCHLOROQUINE [Concomitant]
     Active Substance: HYDROXYCHLOROQUINE
     Indication: Product used for unknown indication
     Dosage: 200 MG, BID
     Route: 065
  7. IRON [Concomitant]
     Active Substance: IRON
     Indication: Product used for unknown indication
     Dosage: 300 MG, BID
     Route: 065
  8. TYLENOL 8 HR ARTHRITIS PAIN [Concomitant]
     Active Substance: ACETAMINOPHEN
     Indication: Product used for unknown indication
     Dosage: 650 MG, TID (EXTENDED RELEASE)
     Route: 065

REACTIONS (15)
  - Blood lactate dehydrogenase increased [Fatal]
  - Breast cancer metastatic [Fatal]
  - Delirium [Fatal]
  - Dizziness [Fatal]
  - General physical health deterioration [Fatal]
  - Heavy menstrual bleeding [Fatal]
  - Hepatic function abnormal [Fatal]
  - Hepatic mass [Fatal]
  - Spleen disorder [Fatal]
  - Splenomegaly [Fatal]
  - Hepatic enzyme increased [Fatal]
  - Anaemia [Fatal]
  - Dyspnoea [Fatal]
  - Lymphadenopathy [Fatal]
  - Thrombocytopenia [Fatal]
